FAERS Safety Report 19045575 (Version 9)
Quarter: 2021Q4

REPORT INFORMATION
  Report Type: Spontaneous
  Country: US (occurrence: US)
  Receive Date: 20210323
  Receipt Date: 20211217
  Transmission Date: 20220303
  Serious: Yes (Death, Hospitalization)
  Sender: FDA-Public Use
  Company Number: US-KARYOPHARM-2021KPT000343

PATIENT

DRUGS (5)
  1. XPOVIO [Suspect]
     Active Substance: SELINEXOR
     Indication: Plasma cell myeloma
     Dosage: 80 MG, WEEKLY
     Route: 048
     Dates: start: 20210215, end: 2021
  2. POMALYST [Concomitant]
     Active Substance: POMALIDOMIDE
     Indication: Plasma cell myeloma
     Dosage: 3 MG, QD X21 DAYS
     Route: 048
     Dates: start: 20210215
  3. POMALYST [Concomitant]
     Active Substance: POMALIDOMIDE
     Dosage: 2 MG, QD (X21 DAYS)
     Route: 048
  4. ZOFRAN [Concomitant]
     Active Substance: ONDANSETRON HYDROCHLORIDE
  5. COMPAZINE [Concomitant]
     Active Substance: PROCHLORPERAZINE MALEATE

REACTIONS (11)
  - Atypical pneumonia [Fatal]
  - Plasma cell myeloma [Fatal]
  - Pulmonary embolism [Unknown]
  - Mucosal inflammation [Recovering/Resolving]
  - Pain [Unknown]
  - Mood altered [Unknown]
  - White blood cell count decreased [Unknown]
  - Alopecia [Unknown]
  - Platelet count decreased [Unknown]
  - Nausea [Not Recovered/Not Resolved]
  - Dyspnoea [Not Recovered/Not Resolved]

NARRATIVE: CASE EVENT DATE: 20210101
